FAERS Safety Report 9664095 (Version 1)
Quarter: 2013Q4

REPORT INFORMATION
  Report Type: Spontaneous
  Country: US (occurrence: US)
  Receive Date: 20131101
  Receipt Date: 20131101
  Transmission Date: 20140711
  Serious: Yes (Hospitalization, Other)
  Sender: FDA-Public Use
  Company Number: US-JNJFOC-20131016408

PATIENT
  Age: 71 Year
  Sex: Female

DRUGS (6)
  1. INVEGA SUSTENNA [Suspect]
     Indication: SCHIZOAFFECTIVE DISORDER
     Route: 030
     Dates: start: 20130913
  2. INVEGA SUSTENNA [Suspect]
     Indication: SCHIZOAFFECTIVE DISORDER
     Route: 030
  3. INVEGA SUSTENNA [Suspect]
     Indication: SCHIZOAFFECTIVE DISORDER
     Route: 030
     Dates: start: 20130718
  4. INVEGA SUSTENNA [Suspect]
     Indication: SCHIZOAFFECTIVE DISORDER
     Route: 030
     Dates: start: 20120219
  5. COGENTIN [Concomitant]
     Route: 065
  6. ARICEPT [Concomitant]
     Route: 065

REACTIONS (6)
  - Hospitalisation [Unknown]
  - Pulmonary embolism [Unknown]
  - Adverse drug reaction [Unknown]
  - Contusion [Unknown]
  - Drug dose omission [Unknown]
  - Treatment noncompliance [Unknown]
